FAERS Safety Report 13860049 (Version 3)
Quarter: 2017Q3

REPORT INFORMATION
  Report Type: Spontaneous
  Country: US (occurrence: US)
  Receive Date: 20170811
  Receipt Date: 20170929
  Transmission Date: 20171127
  Serious: Yes (Hospitalization, Other)
  Sender: FDA-Public Use
  Company Number: US-009507513-1708USA001294

PATIENT
  Age: 32 Year
  Sex: Male

DRUGS (2)
  1. DURABOLIN [Suspect]
     Active Substance: NANDROLONE PHENPROPIONATE
     Dosage: UNK
     Route: 030
  2. TESTOSTERONE. [Concomitant]
     Active Substance: TESTOSTERONE
     Dosage: UNK
     Route: 030

REACTIONS (1)
  - Product use in unapproved indication [Unknown]
